FAERS Safety Report 10670886 (Version 1)
Quarter: 2014Q4

REPORT INFORMATION
  Report Type: Spontaneous
  Country: IT (occurrence: None)
  Receive Date: 20141219
  Receipt Date: 20141219
  Transmission Date: 20150529
  Serious: Yes (Hospitalization)
  Sender: FDA-Public Use
  Company Number: NL01PV14.38165

PATIENT
  Age: 26 Year
  Sex: Female

DRUGS (3)
  1. EN [Suspect]
     Active Substance: DELORAZEPAM
     Indication: INTENTIONAL SELF-INJURY
     Dosage: 60 GTT TOTAL
     Route: 048
     Dates: start: 20141202, end: 20141202
  2. UNKNOWN (FLUVOXAMINE) UNKNOWN [Suspect]
     Active Substance: FLUVOXAMINE
     Indication: INTENTIONAL SELF-INJURY
     Dosage: TOTAL
     Route: 048
     Dates: start: 20141202, end: 20141202
  3. ZOLPIDEM TARTRATE. [Suspect]
     Active Substance: ZOLPIDEM TARTRATE
     Indication: INTENTIONAL SELF-INJURY
     Dosage: 5 DF TOTAL
     Route: 048
     Dates: start: 20141202, end: 20141202

REACTIONS (5)
  - Tremor [None]
  - Gaze palsy [None]
  - Anxiety [None]
  - Drug abuse [None]
  - Intentional self-injury [None]

NARRATIVE: CASE EVENT DATE: 20141202
